FAERS Safety Report 4477059-9 (Version None)
Quarter: 2004Q4

REPORT INFORMATION
  Report Type: 
  Country: None (occurrence: None)
  Receive Date: 20041018
  Receipt Date: 20040930
  Transmission Date: 20050328
  Serious: Yes (Other)
  Sender: FDA-Public Use
  Company Number: PHBS2004CO13108

PATIENT
  Age: 40 Year
  Sex: Female

DRUGS (3)
  1. GLEEVEC [Suspect]
     Indication: CHRONIC MYELOID LEUKAEMIA
     Dosage: 400 MG/DAY
     Route: 048
     Dates: start: 20040920
  2. GLEEVEC [Suspect]
     Dosage: 600 MG/D
     Route: 048
  3. OMEPRAZOLE [Concomitant]

REACTIONS (4)
  - HEADACHE [None]
  - INFLAMMATION [None]
  - SENSATION OF HEAVINESS [None]
  - THROMBOCYTHAEMIA [None]
